FAERS Safety Report 16952040 (Version 2)
Quarter: 2019Q4

REPORT INFORMATION
  Report Type: Spontaneous
  Country: IT (occurrence: IT)
  Receive Date: 20191023
  Receipt Date: 20191217
  Transmission Date: 20200122
  Serious: Yes (Other)
  Sender: FDA-Public Use
  Company Number: IT-UCBSA-2019042586

PATIENT
  Age: 11 Year
  Sex: Female

DRUGS (5)
  1. VIMPAT [Suspect]
     Active Substance: LACOSAMIDE
     Indication: EPILEPTIC ENCEPHALOPATHY
     Dosage: 6 MILLIGRAM/KILOGRAM
  2. VIMPAT [Suspect]
     Active Substance: LACOSAMIDE
     Indication: OFF LABEL USE
  3. CANNABIDIOL [Suspect]
     Active Substance: CANNABIDIOL
     Indication: EPILEPTIC ENCEPHALOPATHY
     Dosage: 20 MILLIGRAM/KILOGRAM/DAY
  4. VALPROIC ACID. [Suspect]
     Active Substance: VALPROIC ACID
     Indication: EPILEPTIC ENCEPHALOPATHY
     Dosage: UNKNOWN DOSE
  5. CLOBAZAM. [Suspect]
     Active Substance: CLOBAZAM
     Indication: EPILEPTIC ENCEPHALOPATHY
     Dosage: UNKNOWN DOSE

REACTIONS (2)
  - Multiple-drug resistance [Recovering/Resolving]
  - Off label use [Unknown]
